FAERS Safety Report 16715676 (Version 3)
Quarter: 2019Q4

REPORT INFORMATION
  Report Type: Report from Study
  Country: ES (occurrence: ES)
  Receive Date: 20190819
  Receipt Date: 20191030
  Transmission Date: 20200122
  Serious: Yes (Death)
  Sender: FDA-Public Use
  Company Number: ES-ROCHE-2380039

PATIENT

DRUGS (1)
  1. RITUXIMAB. [Suspect]
     Active Substance: RITUXIMAB
     Indication: RHEUMATOID ARTHRITIS
     Route: 065

REACTIONS (5)
  - Bronchiectasis [Fatal]
  - Haemoptysis [Fatal]
  - Pneumonia [Fatal]
  - Mycobacterium abscessus infection [Fatal]
  - Pseudomonas infection [Fatal]
